FAERS Safety Report 10047300 (Version 1)
Quarter: 2014Q1

REPORT INFORMATION
  Report Type: Spontaneous
  Country: US (occurrence: US)
  Receive Date: 20140331
  Receipt Date: 20140331
  Transmission Date: 20141002
  Serious: No
  Sender: FDA-Public Use
  Company Number: US-MYLANLABS-2014S1000001

PATIENT
  Age: 81 Year
  Sex: Female
  Weight: 61.24 kg

DRUGS (5)
  1. FENTANYL TRANSDERMAL SYSTEM [Suspect]
     Indication: BACK PAIN
     Dosage: Q3D
     Route: 062
     Dates: start: 20131209
  2. SURGICAL DRESSINGS [Suspect]
     Route: 062
     Dates: start: 20131226
  3. PERCOCET [Concomitant]
  4. CYMBALTA [Concomitant]
  5. LYRICA [Concomitant]

REACTIONS (3)
  - Rash generalised [Not Recovered/Not Resolved]
  - Pruritus generalised [Not Recovered/Not Resolved]
  - Wrong technique in drug usage process [Not Recovered/Not Resolved]
